FAERS Safety Report 7973947-7 (Version None)
Quarter: 2011Q4

REPORT INFORMATION
  Report Type: 
  Country: None (occurrence: None)
  Receive Date: 20111129
  Receipt Date: 20111003
  Transmission Date: 20120403
  Serious: Yes (Other)
  Sender: FDA-Public Use
  Company Number: PHEH2011US01816

PATIENT
  Age: 21 Year
  Sex: Female

DRUGS (5)
  1. SABRIL [Concomitant]
  2. VIMPAT [Concomitant]
  3. AFINITOR [Suspect]
     Indication: TUBEROUS SCLEROSIS
     Dosage: 30 MG, EVERY SEVEN DAY, ORAL
     Route: 048
     Dates: start: 20110603
  4. ABILIFY [Concomitant]
  5. LEVOTHYROXINE SODIUM [Concomitant]

REACTIONS (1)
  - CONVULSION [None]
